FAERS Safety Report 5897314-5 (Version None)
Quarter: 2008Q3

REPORT INFORMATION
  Report Type: 
  Country: None (occurrence: None)
  Receive Date: 20080905
  Receipt Date: 20070926
  Transmission Date: 20090109
  Serious: Yes (Hospitalization)
  Sender: FDA-Public Use
  Company Number: T200701168

PATIENT
  Age: 56 Year
  Sex: Female

DRUGS (19)
  1. LORTAB [Suspect]
  2. BENADRYL [Suspect]
  3. CHANTIX [Suspect]
  4. RIVAROXABAN() [Suspect]
     Indication: ACUTE CORONARY SYNDROME
     Dates: start: 20070802
  5. ASA(ACETYLSALCYLIC ACID) 81MG [Suspect]
     Indication: ACUTE CORONARY SYNDROME
     Dosage: LOW DOSE
     Dates: start: 20070612
  6. PLAVIX [Suspect]
  7. FOLTX /01502401/ (CYANOCOBALAMIN, FOLIC ACID, PYRIDOXINE) [Concomitant]
  8. POTASSIUM CHLORIDE [Concomitant]
  9. PLAVIX [Concomitant]
  10. CALCIUM W/VITAMIN D NOS (CALCIUM, VITAMIN D NOS) [Concomitant]
  11. NITROGLYCERIN [Concomitant]
  12. ISOSORBIDE MONONITRAET (ISOSORBIDE MONONITRATE) [Concomitant]
  13. PAROXETIN /00830801/ (PAROXETINE) [Concomitant]
  14. NEXIUM [Concomitant]
  15. FLEXERIL [Concomitant]
  16. LISINOPRIL [Concomitant]
  17. TOPROL-XL [Concomitant]
  18. PRAVASTATIN [Concomitant]
  19. ASPIRIN [Concomitant]

REACTIONS (1)
  - MENTAL STATUS CHANGES [None]
